FAERS Safety Report 10922642 (Version 1)
Quarter: 2015Q1

REPORT INFORMATION
  Report Type: Spontaneous
  Country: US (occurrence: None)
  Receive Date: 20150313
  Receipt Date: 20150313
  Transmission Date: 20150721
  Serious: No
  Sender: FDA-Public Use
  Company Number: 2015-00030

PATIENT
  Age: 56 Year
  Sex: Female
  Weight: 68.04 kg

DRUGS (6)
  1. LEVOTHYROXINE [Concomitant]
     Active Substance: LEVOTHYROXINE
  2. ZICAM [Suspect]
     Active Substance: ACETAMINOPHEN\CHLORPHENIRAMINE MALEATE\DEXTROMETHORPHAN HYDROBROMIDE\DOXYLAMINE SUCCINATE\PHENYLEPHRINE HYDROCHLORIDE
     Indication: INFLUENZA
     Dosage: ONE RAPIDMELT ORALLY
     Route: 048
     Dates: start: 20150309
  3. ZICAM [Suspect]
     Active Substance: ACETAMINOPHEN\CHLORPHENIRAMINE MALEATE\DEXTROMETHORPHAN HYDROBROMIDE\DOXYLAMINE SUCCINATE\PHENYLEPHRINE HYDROCHLORIDE
     Indication: NASOPHARYNGITIS
     Dosage: ONE RAPIDMELT ORALLY
     Route: 048
     Dates: start: 20150309
  4. LISINOPRIL. [Concomitant]
     Active Substance: LISINOPRIL
  5. ZYRTEC [Concomitant]
     Active Substance: CETIRIZINE HYDROCHLORIDE
  6. MONTELUKAST [Concomitant]
     Active Substance: MONTELUKAST SODIUM

REACTIONS (3)
  - Anosmia [None]
  - Ageusia [None]
  - Middle insomnia [None]

NARRATIVE: CASE EVENT DATE: 20150309
